FAERS Safety Report 12620604 (Version 2)
Quarter: 2016Q3

REPORT INFORMATION
  Report Type: Spontaneous
  Country: ZA (occurrence: ZA)
  Receive Date: 20160804
  Receipt Date: 20160829
  Transmission Date: 20161109
  Serious: Yes (Other)
  Sender: FDA-Public Use
  Company Number: ZA-CIPLA LTD.-2016ZA10134

PATIENT

DRUGS (1)
  1. ESCITALOPRAM [Suspect]
     Active Substance: ESCITALOPRAM OXALATE
     Dosage: 10 MG, QD IN THE MORNING STARTED JUST OVER 2 MONTHS AGO
     Route: 065

REACTIONS (2)
  - Heart rate irregular [Recovering/Resolving]
  - Dyspnoea [Recovering/Resolving]
